FAERS Safety Report 8381388-6 (Version None)
Quarter: 2012Q2

REPORT INFORMATION
  Report Type: 
  Country: None (occurrence: None)
  Receive Date: 20120523
  Receipt Date: 20120518
  Transmission Date: 20120825
  Serious: Yes (Other)
  Sender: FDA-Public Use
  Company Number: PHHY2012GB011180

PATIENT
  Age: 76 Year
  Sex: Female

DRUGS (7)
  1. PAMIDRONATE DISODIUM [Suspect]
     Indication: ARTHRALGIA
     Dosage: 30 MG, FOR EVERY 3 MONTHS
     Route: 042
  2. CALCIUM [Concomitant]
     Dosage: 1200 MG/DAY
  3. PREDNISOLONE [Suspect]
     Dosage: 5 MG/DAY
  4. VITAMIN D [Concomitant]
     Dosage: 800 U/DAY
  5. METHOTREXATE [Concomitant]
  6. RABEPRAZOLE SODIUM [Suspect]
     Dosage: 20 MG/DAY
  7. FOLIC ACID [Concomitant]
     Dosage: 10 MG, UNK

REACTIONS (8)
  - FALL [None]
  - JOINT SWELLING [None]
  - FEMORAL NECK FRACTURE [None]
  - FEMUR FRACTURE [None]
  - BONE PAIN [None]
  - OEDEMA PERIPHERAL [None]
  - STRESS FRACTURE [None]
  - LOWER LIMB FRACTURE [None]
